FAERS Safety Report 15052312 (Version 1)
Quarter: 2018Q2

REPORT INFORMATION
  Report Type: Spontaneous
  Country: US (occurrence: US)
  Receive Date: 20180622
  Receipt Date: 20180622
  Transmission Date: 20180711
  Serious: No
  Sender: FDA-Public Use
  Company Number: US-DENDREON PHARMACEUTICALS LLC-2017DEN000168

PATIENT

DRUGS (8)
  1. LISINOPRIL. [Concomitant]
     Active Substance: LISINOPRIL
  2. ASPIRIN                            /00002701/ [Concomitant]
     Active Substance: ASPIRIN
  3. PROVENGE [Suspect]
     Active Substance: SIPULEUCEL-T
     Dosage: 250 ML, QD
     Route: 042
     Dates: start: 20171113, end: 20171113
  4. VITAMIN D                          /00107901/ [Concomitant]
     Active Substance: ERGOCALCIFEROL
  5. PROVENGE [Suspect]
     Active Substance: SIPULEUCEL-T
     Indication: PROSTATE CANCER
     Dosage: 250 ML, QD
     Route: 042
     Dates: start: 20171030, end: 20171030
  6. PEPCID [Concomitant]
     Active Substance: FAMOTIDINE
  7. CALCIUM [Concomitant]
     Active Substance: CALCIUM
  8. PROVENGE [Suspect]
     Active Substance: SIPULEUCEL-T
     Dosage: 250 ML, QD
     Route: 042
     Dates: start: 20171204, end: 20171204

REACTIONS (6)
  - Limb discomfort [Unknown]
  - Paraesthesia [Unknown]
  - Rash [Unknown]
  - Swelling face [Unknown]
  - Pruritus [Unknown]
  - Eyelid oedema [Unknown]

NARRATIVE: CASE EVENT DATE: 20171211
